FAERS Safety Report 19486345 (Version 1)
Quarter: 2021Q3

REPORT INFORMATION
  Report Type: Spontaneous
  Country: GB (occurrence: GB)
  Receive Date: 20210702
  Receipt Date: 20210702
  Transmission Date: 20211014
  Serious: Yes (Other)
  Sender: FDA-Public Use
  Company Number: GB-ORGANON-O2106GBR002243

PATIENT
  Age: 30 Year
  Sex: Female
  Weight: 95 kg

DRUGS (4)
  1. MOMETASONE FUROATE. [Suspect]
     Active Substance: MOMETASONE FUROATE
     Indication: ILL-DEFINED DISORDER
     Dosage: 0.1% ONCE A DAY AS REQUIRED (OR HYDROCORTISONE OR EUMOVATE DEPENDING ON SEVERITY OF SYMPTOM)
     Route: 061
     Dates: start: 20190101, end: 20210501
  2. CITALOPRAM [Concomitant]
     Active Substance: CITALOPRAM HYDROBROMIDE
     Indication: ILL-DEFINED DISORDER
     Dosage: UNK
  3. HYDROCORTISONE. [Suspect]
     Active Substance: HYDROCORTISONE
     Indication: ILL-DEFINED DISORDER
     Dosage: ONCE OR TWICE A DAY WHEN REQUIRED (1% HYDROCORTISONE, AND STRONGER TOPICAL STEROIDS AS REQUIRED)
     Route: 061
     Dates: start: 20190101, end: 20210601
  4. EUMOVATE [Suspect]
     Active Substance: CLOBETASONE BUTYRATE
     Indication: ILL-DEFINED DISORDER
     Dosage: 0.05% ONCE A DAY AS REQUIRED (OR HYDROCORTISONE 1% AND MOMETASONE 0.1% DEPENDING ON SEVERITY OF SYMP
     Route: 061
     Dates: start: 20190101, end: 20210501

REACTIONS (2)
  - Withdrawal syndrome [Recovering/Resolving]
  - Medication error [Unknown]

NARRATIVE: CASE EVENT DATE: 20210101
